FAERS Safety Report 21214671 (Version 1)
Quarter: 2022Q3

REPORT INFORMATION
  Report Type: Spontaneous
  Country: IL (occurrence: IL)
  Receive Date: 20220816
  Receipt Date: 20220816
  Transmission Date: 20221026
  Serious: Yes (Other)
  Sender: FDA-Public Use
  Company Number: IL-ORGANON-O2208ISR000760

PATIENT
  Age: 27 Year
  Sex: Male

DRUGS (1)
  1. PROPECIA [Suspect]
     Active Substance: FINASTERIDE
     Indication: Alopecia
     Dosage: UNK
     Route: 048

REACTIONS (11)
  - Suicidal ideation [Recovering/Resolving]
  - Erectile dysfunction [Recovering/Resolving]
  - Hallucination [Recovering/Resolving]
  - Emotional disorder [Recovering/Resolving]
  - Feeling abnormal [Recovering/Resolving]
  - Panic attack [Recovering/Resolving]
  - Feeling abnormal [Recovering/Resolving]
  - Anxiety [Recovering/Resolving]
  - Obsessive thoughts [Recovering/Resolving]
  - Emotional poverty [Recovering/Resolving]
  - Depression [Recovering/Resolving]
